FAERS Safety Report 4557652-5 (Version None)
Quarter: 2005Q1

REPORT INFORMATION
  Report Type: 
  Country: None (occurrence: None)
  Receive Date: 20050118
  Receipt Date: 20050105
  Transmission Date: 20050727
  Serious: Yes (Other)
  Sender: FDA-Public Use
  Company Number: 05-000003

PATIENT
  Age: 56 Year
  Sex: Female
  Weight: 59 kg

DRUGS (3)
  1. FEMHRT [Suspect]
     Dosage: 5/1000UG, QD
     Dates: start: 20020101, end: 20041216
  2. ZESTRIL [Concomitant]
  3. FOSAMAX [Concomitant]

REACTIONS (3)
  - BRAIN SCAN ABNORMAL [None]
  - HEADACHE [None]
  - PULMONARY HYPERTENSION [None]
